FAERS Safety Report 4929938-3 (Version None)
Quarter: 2006Q1

REPORT INFORMATION
  Report Type: 
  Country: None (occurrence: None)
  Receive Date: 20060127
  Receipt Date: 20051213
  Transmission Date: 20060701
  Serious: Yes (Other)
  Sender: FDA-Public Use
  Company Number: 2005144859

PATIENT
  Age: 59 Year
  Sex: Male

DRUGS (5)
  1. LYRICA [Suspect]
     Indication: DIABETIC NEPHROPATHY
     Dosage: 100 MG (50 MG 2 IN 1 D)
     Dates: start: 20051104, end: 20051111
  2. PROVIGIL [Concomitant]
  3. GLUCOPHAGE [Concomitant]
  4. ATOS (PIOGLITAZONE) [Concomitant]
  5. AMARYL [Concomitant]

REACTIONS (4)
  - CHROMATOPSIA [None]
  - CRYING [None]
  - DEPRESSED MOOD [None]
  - EMOTIONAL DISORDER [None]
